FAERS Safety Report 4847885-2 (Version None)
Quarter: 2005Q4

REPORT INFORMATION
  Report Type: 
  Country: None (occurrence: None)
  Receive Date: 20051207
  Receipt Date: 20051207
  Transmission Date: 20060501
  Serious: Yes (Other)
  Sender: FDA-Public Use
  Company Number: None

PATIENT
  Age: 50 Year
  Sex: Female
  Weight: 51.7101 kg

DRUGS (1)
  1. BONIVA [Suspect]
     Indication: OSTEOPENIA
     Dosage: ONE TABLET   PER MONTH  PO
     Route: 048
     Dates: start: 20051201, end: 20051201

REACTIONS (10)
  - BACK PAIN [None]
  - BONE PAIN [None]
  - CHEST DISCOMFORT [None]
  - DYSPNOEA [None]
  - MYALGIA [None]
  - NECK PAIN [None]
  - PAIN [None]
  - RESPIRATORY DISORDER [None]
  - SHOULDER PAIN [None]
  - STOMACH DISCOMFORT [None]
